FAERS Safety Report 8364909-9 (Version None)
Quarter: 2012Q2

REPORT INFORMATION
  Report Type: 
  Country: None (occurrence: None)
  Receive Date: 20120516
  Receipt Date: 20120509
  Transmission Date: 20120825
  Serious: Yes (Death, Hospitalization)
  Sender: FDA-Public Use
  Company Number: IE-MEDIMMUNE-MEDI-0013854

PATIENT
  Age: 8 Month
  Sex: Female
  Weight: 0.9 kg

DRUGS (5)
  1. OXYGEN [Concomitant]
     Indication: LUNG DISORDER
     Route: 048
  2. SYNAGIS [Suspect]
     Indication: PREMATURE BABY
     Route: 030
     Dates: start: 20111020
  3. AMOXICILLIN [Concomitant]
     Indication: UPPER RESPIRATORY TRACT INFECTION
     Route: 048
     Dates: start: 20111025, end: 20111105
  4. AUGMENTIN [Concomitant]
     Indication: UPPER RESPIRATORY TRACT INFECTION
     Route: 048
     Dates: start: 20111105
  5. SYNAGIS [Suspect]
     Indication: LUNG DISORDER
     Route: 030
     Dates: start: 20111020

REACTIONS (9)
  - BRONCHOPULMONARY DYSPLASIA [None]
  - CARDIO-RESPIRATORY ARREST [None]
  - CONGENITAL CARDIOVASCULAR ANOMALY [None]
  - UPPER RESPIRATORY TRACT INFECTION [None]
  - BRONCHOPNEUMONIA [None]
  - APNOEA [None]
  - INFECTION [None]
  - MALAISE [None]
  - LYMPHADENOPATHY [None]
